FAERS Safety Report 8510726-6 (Version None)
Quarter: 2012Q3

REPORT INFORMATION
  Report Type: 
  Country: None (occurrence: None)
  Receive Date: 20120716
  Receipt Date: 20120709
  Transmission Date: 20120928
  Serious: No
  Sender: FDA-Public Use
  Company Number: US-PFIZER INC-2012164376

PATIENT
  Sex: Male

DRUGS (4)
  1. PROSCAR [Concomitant]
     Dosage: UNK
  2. TOVIAZ [Suspect]
     Dosage: 8 MG, 1X/DAY (AT NIGHT)
  3. FLOMAX [Concomitant]
     Dosage: UNK
  4. TOVIAZ [Suspect]
     Indication: HYPERTONIC BLADDER
     Dosage: 4 MG, 1X/DAY (AT NIGHT)

REACTIONS (1)
  - POLLAKIURIA [None]
